FAERS Safety Report 16814785 (Version 1)
Quarter: 2019Q4

REPORT INFORMATION
  Report Type: Spontaneous
  Country: US (occurrence: US)
  Receive Date: 20190916
  Receipt Date: 20190916
  Transmission Date: 20200122
  Serious: No
  Sender: FDA-Public Use
  Company Number: None

PATIENT
  Age: 38 Year
  Sex: Female
  Weight: 52.2 kg

DRUGS (1)
  1. EMGALITY [Suspect]
     Active Substance: GALCANEZUMAB-GNLM
     Indication: MIGRAINE
     Dosage: ?          QUANTITY:1 INJECTION(S);OTHER FREQUENCY:ONE EVERY MONTH;?
     Route: 058
     Dates: start: 20190914, end: 20190914

REACTIONS (8)
  - Chest pain [None]
  - Fatigue [None]
  - Dyspnoea [None]
  - Constipation [None]
  - Dizziness [None]
  - Nausea [None]
  - Chest discomfort [None]
  - Vomiting [None]

NARRATIVE: CASE EVENT DATE: 20190914
